FAERS Safety Report 6166825-X (Version None)
Quarter: 2009Q2

REPORT INFORMATION
  Report Type: 
  Country: None (occurrence: None)
  Receive Date: 20090423
  Receipt Date: 20090423
  Transmission Date: 20091009
  Serious: Yes (Life-Threatening, Hospitalization)
  Sender: FDA-Public Use
  Company Number: None

PATIENT
  Sex: Female
  Weight: 48.5349 kg

DRUGS (1)
  1. DIGOXIN [Suspect]
     Indication: CARDIAC DISORDER
     Dosage: 1/2 TABLET ONCE DAILY PO
     Route: 048
     Dates: start: 20070101, end: 20090130

REACTIONS (5)
  - ASTHENIA [None]
  - BLOOD DISORDER [None]
  - CARDIOACTIVE DRUG LEVEL INCREASED [None]
  - NAUSEA [None]
  - THERAPEUTIC AGENT TOXICITY [None]
